FAERS Safety Report 7760482-4 (Version None)
Quarter: 2011Q3

REPORT INFORMATION
  Report Type: 
  Country: None (occurrence: None)
  Receive Date: 20110919
  Receipt Date: 20110913
  Transmission Date: 20111222
  Serious: No
  Sender: FDA-Public Use
  Company Number: US-ASTRAZENECA-2011SE10162

PATIENT
  Age: 56 Year
  Sex: Female

DRUGS (2)
  1. NEXIUM [Suspect]
     Route: 048
  2. CRESTOR [Suspect]
     Route: 048

REACTIONS (10)
  - DISTRACTIBILITY [None]
  - FEELING ABNORMAL [None]
  - STRESS [None]
  - OESOPHAGEAL SPASM [None]
  - POST-TRAUMATIC STRESS DISORDER [None]
  - MALAISE [None]
  - OESOPHAGEAL FOOD IMPACTION [None]
  - DRUG DOSE OMISSION [None]
  - DYSPHAGIA [None]
  - DYSPEPSIA [None]
